FAERS Safety Report 18343241 (Version 1)
Quarter: 2020Q4

REPORT INFORMATION
  Report Type: Spontaneous
  Country: US (occurrence: US)
  Receive Date: 20201003
  Receipt Date: 20201003
  Transmission Date: 20210113
  Serious: Yes (Hospitalization)
  Sender: FDA-Public Use
  Company Number: None

PATIENT
  Age: 63 Year
  Sex: Female
  Weight: 68.4 kg

DRUGS (4)
  1. VIT D [Concomitant]
     Active Substance: VITAMIN D NOS
  2. METOPROLOL. [Concomitant]
     Active Substance: METOPROLOL
  3. VITAMIN C [Concomitant]
     Active Substance: ASCORBIC ACID
  4. SERTRALINE [Suspect]
     Active Substance: SERTRALINE HYDROCHLORIDE
     Indication: ANXIETY
     Route: 048
     Dates: start: 20200905, end: 20200908

REACTIONS (6)
  - Hypertension [None]
  - Headache [None]
  - Nausea [None]
  - Diarrhoea [None]
  - Chest pain [None]
  - Anxiety [None]

NARRATIVE: CASE EVENT DATE: 20200908
